FAERS Safety Report 25722704 (Version 1)
Quarter: 2025Q3

REPORT INFORMATION
  Report Type: Spontaneous
  Country: US (occurrence: US)
  Receive Date: 20250825
  Receipt Date: 20250825
  Transmission Date: 20251020
  Serious: No
  Sender: DR REDDYS
  Company Number: US-DRL-USA-USA/2025/07/011686

PATIENT
  Sex: Male

DRUGS (1)
  1. DOANS MAXIMUM STRENGTH [Suspect]
     Active Substance: MAGNESIUM SALICYLATE
     Indication: Back pain
     Route: 065

REACTIONS (1)
  - Drug ineffective [Unknown]
